FAERS Safety Report 15050255 (Version 3)
Quarter: 2018Q3

REPORT INFORMATION
  Report Type: Spontaneous
  Country: US (occurrence: US)
  Receive Date: 20180622
  Receipt Date: 20180829
  Transmission Date: 20181010
  Serious: No
  Sender: FDA-Public Use
  Company Number: US-SA-2018SA107870

PATIENT
  Age: 53 Year
  Sex: Female

DRUGS (2)
  1. DUPIXENT [Suspect]
     Active Substance: DUPILUMAB
     Indication: DERMATITIS CONTACT
     Dosage: 300 MG, QOW
     Route: 065
     Dates: start: 20180215
  2. DUPIXENT [Suspect]
     Active Substance: DUPILUMAB
     Indication: DERMATITIS ATOPIC
     Dosage: 300 MG, QOW
     Route: 058

REACTIONS (9)
  - Headache [Recovered/Resolved]
  - Dry eye [Unknown]
  - Eye infection [Unknown]
  - Conjunctivitis [Unknown]
  - Eye pruritus [Unknown]
  - Herpes zoster [Not Recovered/Not Resolved]
  - Blepharitis [Unknown]
  - Eye inflammation [Unknown]
  - Arthralgia [Recovered/Resolved]

NARRATIVE: CASE EVENT DATE: 201802
